FAERS Safety Report 25870415 (Version 5)
Quarter: 2025Q4

REPORT INFORMATION
  Report Type: Report from Study
  Country: US (occurrence: US)
  Receive Date: 20251001
  Receipt Date: 20251224
  Transmission Date: 20260118
  Serious: Yes (Hospitalization, Other)
  Sender: ABBVIE
  Company Number: US-ABBVIE-6478807

PATIENT
  Age: 75 Year
  Sex: Female

DRUGS (4)
  1. SKYRIZI [Suspect]
     Active Substance: RISANKIZUMAB-RZAA
     Indication: Psoriasis
     Dosage: STRENGTH: 150MG/ML
     Route: 058
     Dates: start: 20240205
  2. SKYRIZI [Suspect]
     Active Substance: RISANKIZUMAB-RZAA
     Dosage: STRENGTH: 150MG/ML
     Route: 058
     Dates: start: 20210101
  3. SKYRIZI [Suspect]
     Active Substance: RISANKIZUMAB-RZAA
     Dosage: STRENGTH: 150MG/ML
     Route: 058
  4. SKYRIZI [Suspect]
     Active Substance: RISANKIZUMAB-RZAA
     Route: 058
     Dates: start: 20251030

REACTIONS (19)
  - Concussion [Not Recovered/Not Resolved]
  - Injection site pain [Unknown]
  - Muscle strain [Unknown]
  - Migraine [Unknown]
  - Psoriasis [Recovering/Resolving]
  - Skin fissures [Unknown]
  - Skin haemorrhage [Unknown]
  - Feeding disorder [Unknown]
  - Memory impairment [Not Recovered/Not Resolved]
  - Cystitis [Recovered/Resolved]
  - Blood glucose decreased [Unknown]
  - Loss of consciousness [Unknown]
  - Fall [Not Recovered/Not Resolved]
  - Fluid intake reduced [Unknown]
  - Retinal detachment [Recovering/Resolving]
  - Gait inability [Not Recovered/Not Resolved]
  - Aphasia [Not Recovered/Not Resolved]
  - Rash [Recovering/Resolving]
  - Multiple allergies [Unknown]

NARRATIVE: CASE EVENT DATE: 20250101
